APPROVED DRUG PRODUCT: FENOFIBRATE
Active Ingredient: FENOFIBRATE
Strength: 54MG
Dosage Form/Route: TABLET;ORAL
Application: A210379 | Product #001 | TE Code: AB
Applicant: MACLEODS PHARMACEUTICALS LTD
Approved: Jan 21, 2026 | RLD: No | RS: No | Type: RX